FAERS Safety Report 7302654-9 (Version None)
Quarter: 2011Q1

REPORT INFORMATION
  Report Type: 
  Country: None (occurrence: None)
  Receive Date: 20110218
  Receipt Date: 20110214
  Transmission Date: 20110831
  Serious: Yes (Hospitalization, Other)
  Sender: FDA-Public Use
  Company Number: US-B.I. PHARMACEUTICALS,INC./RIDGEFIELD-2010-BP-15386BP

PATIENT
  Age: 82 Year
  Sex: Female

DRUGS (4)
  1. AMIODARONE [Concomitant]
     Indication: CARDIAC DISORDER
  2. LOTREL [Concomitant]
     Indication: HYPERTENSION
  3. PRADAXA [Suspect]
     Indication: ATRIAL FIBRILLATION
     Dosage: 300 MG
     Route: 048
     Dates: start: 20101201, end: 20110121
  4. ZOLOFT [Concomitant]
     Indication: DEPRESSION

REACTIONS (3)
  - CEREBRAL HAEMORRHAGE [None]
  - SUBDURAL HAEMATOMA [None]
  - CONTUSION [None]
